FAERS Safety Report 5930044-X (Version None)
Quarter: 2008Q4

REPORT INFORMATION
  Report Type: 
  Country: None (occurrence: None)
  Receive Date: 20081024
  Receipt Date: 20081016
  Transmission Date: 20090506
  Serious: Yes (Other)
  Sender: FDA-Public Use
  Company Number: US-B.I. PHARMACEUTICALS,INC./RIDGEFIELD-2008-BP-15967BP

PATIENT

DRUGS (1)
  1. VIRAMUNE [Suspect]
     Route: 048
     Dates: start: 20000101

REACTIONS (1)
  - STEVENS-JOHNSON SYNDROME [None]
